FAERS Safety Report 13774130 (Version 1)
Quarter: 2017Q3

REPORT INFORMATION
  Report Type: Report from Study
  Country: ZA (occurrence: ZA)
  Receive Date: 20170721
  Receipt Date: 20170721
  Transmission Date: 20171127
  Serious: Yes (Death, Other)
  Sender: FDA-Public Use
  Company Number: PHHY2017ZA107032

PATIENT
  Sex: Female

DRUGS (1)
  1. EXFORGE [Suspect]
     Active Substance: AMLODIPINE BESYLATE\VALSARTAN
     Indication: HYPERTENSION
     Dosage: (5 MG AMLODIPINE, 12.5 MG HYDROCHLOROTHIAZIDE, 160 MG VALSARTAN)
     Route: 048

REACTIONS (2)
  - Kidney infection [Unknown]
  - Internal haemorrhage [Fatal]
